FAERS Safety Report 6486548-7 (Version None)
Quarter: 2009Q4

REPORT INFORMATION
  Report Type: 
  Country: None (occurrence: None)
  Receive Date: 20091209
  Receipt Date: 20091209
  Transmission Date: 20100525
  Serious: Yes (Hospitalization)
  Sender: FDA-Public Use
  Company Number: None

PATIENT
  Age: 61 Year
  Sex: Male
  Weight: 167 kg

DRUGS (9)
  1. LISINOPRIL [Suspect]
     Indication: HYPERTENSION
     Dosage: 40MG / QHS / PO  CHRONIC
     Route: 048
  2. ATENOLOL [Suspect]
     Indication: HYPERTENSION
     Dosage: 50MG / DAY/ PO  CHRONIC
     Route: 048
  3. DILTIAZEM [Suspect]
     Indication: HYPERTENSION
     Dosage: CHRONIC
  4. HYDROCHLOROTHIAZIDE [Concomitant]
  5. GUAIFENISIN [Concomitant]
  6. LANTUS [Concomitant]
  7. INSULIN [Concomitant]
  8. TYLENOL (CAPLET) [Concomitant]
  9. IBUPROFEN [Concomitant]

REACTIONS (6)
  - ACCIDENTAL OVERDOSE [None]
  - DIZZINESS [None]
  - HYPOTENSION [None]
  - NODAL ARRHYTHMIA [None]
  - OVERDOSE [None]
  - PRESYNCOPE [None]
